FAERS Safety Report 12373757 (Version 1)
Quarter: 2016Q2

REPORT INFORMATION
  Report Type: Report from Study
  Country: DE (occurrence: DE)
  Receive Date: 20160517
  Receipt Date: 20160517
  Transmission Date: 20160815
  Serious: Yes (Death, Hospitalization)
  Sender: FDA-Public Use
  Company Number: DE-ROCHE-ITM201506IM018187

PATIENT
  Age: 76 Year
  Sex: Male
  Weight: 61 kg

DRUGS (3)
  1. ESBRIET [Suspect]
     Active Substance: PIRFENIDONE
     Route: 048
     Dates: start: 2015
  2. ESBRIET [Suspect]
     Active Substance: PIRFENIDONE
     Indication: IDIOPATHIC PULMONARY FIBROSIS
     Route: 048
     Dates: start: 20140922, end: 20151212
  3. ESBRIET [Suspect]
     Active Substance: PIRFENIDONE
     Route: 048
     Dates: start: 20141006, end: 20150609

REACTIONS (5)
  - Rash erythematous [Unknown]
  - Pruritus [Unknown]
  - Ejection fraction decreased [Unknown]
  - Peripheral swelling [Unknown]
  - General physical health deterioration [Fatal]

NARRATIVE: CASE EVENT DATE: 201604
